FAERS Safety Report 25341855 (Version 1)
Quarter: 2025Q2

REPORT INFORMATION
  Report Type: Other
  Country: UA (occurrence: UA)
  Receive Date: 20250521
  Receipt Date: 20250521
  Transmission Date: 20250717
  Serious: Yes (Life-Threatening, Hospitalization, Other)
  Sender: B BRAUN
  Company Number: UA-B.Braun Medical Inc.-2177185

PATIENT
  Age: 40 Year
  Sex: Female

DRUGS (14)
  1. ACETAMINOPHEN [Suspect]
     Active Substance: ACETAMINOPHEN
     Indication: Pain management
  2. PROPOFOL [Suspect]
     Active Substance: PROPOFOL
  3. BUPIVACAINE [Suspect]
     Active Substance: BUPIVACAINE
  4. UNSPECIFIED INGREDIENT [Suspect]
     Active Substance: UNSPECIFIED INGREDIENT
  5. MEDROL [Suspect]
     Active Substance: METHYLPREDNISOLONE
  6. OMEPRAZOLE [Suspect]
     Active Substance: OMEPRAZOLE
  7. POTASSIUM CHLORIDE [Suspect]
     Active Substance: POTASSIUM CHLORIDE
  8. CALAMINE [Suspect]
     Active Substance: CALAMINE\FERRIC OXIDE RED\ZINC OXIDE
  9. CALCIUM CHLORIDE\MAGNESIUM CHLORIDE\MALIC ACID\POTASSIUM CHLORIDE\SODI [Suspect]
     Active Substance: CALCIUM CHLORIDE\MAGNESIUM CHLORIDE\MALIC ACID\POTASSIUM CHLORIDE\SODIUM ACETATE\SODIUM CHLORIDE
  10. DEXAMETHASONE [Suspect]
     Active Substance: DEXAMETHASONE
  11. NOREPINEPHRINE BITARTRATE [Suspect]
     Active Substance: NOREPINEPHRINE BITARTRATE
  12. DICLOFENAC [Suspect]
     Active Substance: DICLOFENAC
  13. TRACRIUM [Suspect]
     Active Substance: ATRACURIUM BESYLATE
  14. FENTANYL [Suspect]
     Active Substance: FENTANYL

REACTIONS (1)
  - Myasthenia gravis crisis [Recovering/Resolving]
